FAERS Safety Report 26111846 (Version 1)
Quarter: 2025Q4

REPORT INFORMATION
  Report Type: Spontaneous
  Country: US (occurrence: None)
  Receive Date: 20251201
  Receipt Date: 20251201
  Transmission Date: 20260117
  Serious: Yes (unspecified)
  Sender: FDA-CTU
  Company Number: None

PATIENT
  Age: 66 Year
  Sex: Female
  Weight: 89.1 kg

DRUGS (1)
  1. CLINDAMYCIN [Suspect]
     Active Substance: CLINDAMYCIN
     Indication: Breast abscess

REACTIONS (3)
  - Abdominal pain upper [None]
  - Gastrointestinal ulcer [None]
  - Oesophagitis [None]

NARRATIVE: CASE EVENT DATE: 20251201
